FAERS Safety Report 10215560 (Version 1)
Quarter: 2014Q2

REPORT INFORMATION
  Report Type: Spontaneous
  Country: KR (occurrence: KR)
  Receive Date: 20140604
  Receipt Date: 20140604
  Transmission Date: 20141212
  Serious: Yes (Death, Other)
  Sender: FDA-Public Use
  Company Number: KR-ACCORD-023980

PATIENT
  Age: 59 Year
  Sex: Male

DRUGS (5)
  1. LEUCOVORIN [Suspect]
     Indication: COLON CANCER METASTATIC
  2. CETUXIMAB [Suspect]
     Indication: COLON CANCER METASTATIC
  3. FLUOROURACIL [Suspect]
     Indication: COLON CANCER METASTATIC
  4. OXALIPLATIN [Suspect]
     Indication: COLON CANCER METASTATIC
  5. IRINOTECAN [Suspect]
     Indication: COLON CANCER METASTATIC

REACTIONS (5)
  - Febrile neutropenia [Unknown]
  - Septic shock [Fatal]
  - Hyperbilirubinaemia [Unknown]
  - Disease progression [Unknown]
  - Tumour lysis syndrome [Recovering/Resolving]
